FAERS Safety Report 24276825 (Version 2)
Quarter: 2024Q3

REPORT INFORMATION
  Report Type: Spontaneous
  Country: US (occurrence: US)
  Receive Date: 20240903
  Receipt Date: 20240930
  Transmission Date: 20241017
  Serious: No
  Sender: AVEVA
  Company Number: US-AVEVA-000728

PATIENT
  Age: 64 Year
  Sex: Male

DRUGS (1)
  1. BUPRENORPHINE [Suspect]
     Active Substance: BUPRENORPHINE
     Indication: Pain
     Dosage: UNK (20 MICROGRAM PER HOUR)
     Route: 062

REACTIONS (2)
  - Treatment noncompliance [Unknown]
  - Therapeutic agent urine negative [Unknown]
